FAERS Safety Report 16844591 (Version 1)
Quarter: 2019Q3

REPORT INFORMATION
  Report Type: Spontaneous
  Country: US (occurrence: US)
  Receive Date: 20190924
  Receipt Date: 20190924
  Transmission Date: 20191005
  Serious: Yes (Hospitalization)
  Sender: FDA-Public Use
  Company Number: US-AMNEAL PHARMACEUTICALS-2019-AMRX-01941

PATIENT
  Sex: Female

DRUGS (1)
  1. RYTARY [Suspect]
     Active Substance: CARBIDOPA\LEVODOPA
     Indication: PRODUCT USED FOR UNKNOWN INDICATION
     Dosage: 3 CAPSULES, 5X/DAY (AT 7:30 AM,10 AM,1 PM,4 PM, 7 PM)
     Route: 048

REACTIONS (4)
  - Influenza [Unknown]
  - Hypotension [Unknown]
  - Prescribed overdose [Unknown]
  - Asthenia [Unknown]
